FAERS Safety Report 5714640-0 (Version None)
Quarter: 2008Q2

REPORT INFORMATION
  Report Type: 
  Country: None (occurrence: None)
  Receive Date: 20080423
  Receipt Date: 20080421
  Transmission Date: 20081010
  Serious: Yes (Other)
  Sender: FDA-Public Use
  Company Number: B0517776A

PATIENT
  Age: 82 Year
  Sex: Male

DRUGS (10)
  1. ARTIST [Suspect]
     Indication: HYPERTENSION
     Dosage: 10MG PER DAY
     Route: 048
  2. SILODOSIN [Suspect]
     Indication: DYSURIA
     Dosage: 4MG TWICE PER DAY
     Route: 048
     Dates: start: 20070925, end: 20070927
  3. ITOROL [Suspect]
     Indication: ANGINA PECTORIS
     Dosage: 40MG TWICE PER DAY
     Route: 048
  4. CONIEL [Suspect]
     Indication: HYPERTENSION
     Dosage: 4MG TWICE PER DAY
     Route: 048
  5. ASPIRIN [Concomitant]
  6. MAGMITT [Concomitant]
  7. FENOFIBRATE [Concomitant]
  8. SIMVASTATIN [Concomitant]
  9. HERBAL EXTRACTS [Concomitant]
     Dates: start: 20040213
  10. BUP-4 [Concomitant]
     Dates: start: 20061110, end: 20071225

REACTIONS (3)
  - DIZZINESS [None]
  - DIZZINESS POSTURAL [None]
  - FEELING ABNORMAL [None]
